FAERS Safety Report 9880745 (Version 3)
Quarter: 2014Q1

REPORT INFORMATION
  Report Type: Spontaneous
  Country: DE (occurrence: None)
  Receive Date: 20140205
  Receipt Date: 20140311
  Transmission Date: 20141002
  Serious: Yes (Other)
  Sender: FDA-Public Use
  Company Number: NGX_02227_2014

PATIENT
  Age: 46 Year
  Sex: Female
  Weight: 85 kg

DRUGS (3)
  1. QUTENZA (CAPSAICIN) PATCH (179 MG, 179 MG) [Suspect]
     Indication: NEUROPATHY PERIPHERAL
     Dosage: 1 DF [SECOND APPLICATION, DURATION OF APPLICATION NOTED AS 45 AND 60 MINUTES] TOPICAL ON:?3/12/2013?5/29/2013?10/30/2013?
     Dates: end: 2013
  2. GABAPENTIN [Concomitant]
  3. CELEBREX [Concomitant]

REACTIONS (4)
  - Application site burn [None]
  - Application site vesicles [None]
  - Skin exfoliation [None]
  - Application site scar [None]
